FAERS Safety Report 6146711-1 (Version None)
Quarter: 2009Q2

REPORT INFORMATION
  Report Type: 
  Country: None (occurrence: None)
  Receive Date: 20090403
  Receipt Date: 20090403
  Transmission Date: 20091009
  Serious: Yes (Hospitalization, Other)
  Sender: FDA-Public Use
  Company Number: None

PATIENT
  Age: 62 Year
  Sex: Male

DRUGS (2)
  1. FENTANYL [Suspect]
     Indication: PAIN
     Dosage: 200 MCG OTHER TOP
     Route: 061
     Dates: end: 20090207
  2. GABAPENTIN [Suspect]
     Indication: PAIN
     Dosage: 600 MG TID PO
     Route: 048
     Dates: start: 20090204, end: 20090207

REACTIONS (2)
  - RESPIRATORY DEPRESSION [None]
  - SEDATION [None]
